FAERS Safety Report 19354110 (Version 1)
Quarter: 2021Q2

REPORT INFORMATION
  Report Type: Spontaneous
  Country: US (occurrence: US)
  Receive Date: 20210602
  Receipt Date: 20210602
  Transmission Date: 20210717
  Serious: No
  Sender: FDA-Public Use
  Company Number: US-SA-2021SA177840

PATIENT
  Age: 33 Year
  Sex: Male

DRUGS (10)
  1. SIMPONI [Concomitant]
     Active Substance: GOLIMUMAB
  2. CELEBREX [Concomitant]
     Active Substance: CELECOXIB
     Dosage: 10MG
  3. VITAMINS NOS [Concomitant]
     Active Substance: VITAMINS
     Dosage: UNK, QD
  4. DUPIXENT [Suspect]
     Active Substance: DUPILUMAB
     Indication: COLITIS ULCERATIVE
  5. BACTROBAN [Concomitant]
     Active Substance: MUPIROCIN\MUPIROCIN CALCIUM
  6. DUPIXENT [Suspect]
     Active Substance: DUPILUMAB
     Indication: COLITIS
  7. ZYFLO [Concomitant]
     Active Substance: ZILEUTON
  8. ZYRTEC [Concomitant]
     Active Substance: CETIRIZINE HYDROCHLORIDE
  9. DUPIXENT [Suspect]
     Active Substance: DUPILUMAB
     Indication: ASTHMA
     Dosage: 200 MG, 1X
     Route: 058
     Dates: start: 20210513, end: 20210514
  10. PULMICORT FLEXHALER [Concomitant]
     Active Substance: BUDESONIDE

REACTIONS (2)
  - Incorrect dose administered [Unknown]
  - Product use in unapproved indication [Unknown]

NARRATIVE: CASE EVENT DATE: 20210513
